FAERS Safety Report 9506725 (Version 4)
Quarter: 2015Q2

REPORT INFORMATION
  Report Type: Spontaneous
  Country: US (occurrence: US)
  Receive Date: 20130908
  Receipt Date: 20150616
  Transmission Date: 20150821
  Serious: Yes (Hospitalization, Disabling)
  Sender: FDA-Public Use
  Company Number: US-SANOFI-AVENTIS-2013SA088371

PATIENT
  Age: 77 Year
  Sex: Female

DRUGS (12)
  1. PLAVIX [Suspect]
     Active Substance: CLOPIDOGREL BISULFATE
     Indication: CARDIAC DISORDER
     Route: 048
     Dates: start: 20110611, end: 20120331
  2. NITRO [Concomitant]
     Active Substance: NITROGLYCERIN
     Route: 060
  3. IMDUR [Concomitant]
     Active Substance: ISOSORBIDE MONONITRATE
  4. PLAVIX [Suspect]
     Active Substance: CLOPIDOGREL BISULFATE
     Indication: THROMBOSIS PROPHYLAXIS
     Route: 048
     Dates: start: 20110611, end: 20120331
  5. SINGULAIR [Concomitant]
     Active Substance: MONTELUKAST SODIUM
  6. RANEXA [Concomitant]
     Active Substance: RANOLAZINE
  7. LIPITOR [Concomitant]
     Active Substance: ATORVASTATIN CALCIUM
  8. ACTOS [Concomitant]
     Active Substance: PIOGLITAZONE HYDROCHLORIDE
  9. PAXIL [Concomitant]
     Active Substance: PAROXETINE HYDROCHLORIDE
  10. NORVASC [Concomitant]
     Active Substance: AMLODIPINE BESYLATE
  11. ASPIRIN. [Concomitant]
     Active Substance: ASPIRIN
     Dosage: ONE A DAY
  12. SODIUM BICARBONATE. [Concomitant]
     Active Substance: SODIUM BICARBONATE

REACTIONS (5)
  - Multiple injuries [Unknown]
  - Pain [Unknown]
  - Physical disability [Unknown]
  - Gastrointestinal haemorrhage [Unknown]
  - Thrombotic thrombocytopenic purpura [Unknown]

NARRATIVE: CASE EVENT DATE: 20120331
